FAERS Safety Report 10389876 (Version 1)
Quarter: 2014Q1

REPORT INFORMATION
  Report Type: Spontaneous
  Country: US (occurrence: None)
  Receive Date: 20140306
  Receipt Date: 20140306
  Transmission Date: 20141002
  Serious: Yes (Hospitalization)
  Sender: FDA-Public Use
  Company Number: 163-21880-13012869

PATIENT
  Age: 84 Year
  Sex: Female
  Weight: 72.12 kg

DRUGS (15)
  1. REVLIMID (LENALIDOMIDE) (5 MILLIGRAM, CAPSULES) [Suspect]
     Indication: PLASMA CELL MYELOMA
     Dosage: 5 MG, 21 IN 28 D, PO
     Route: 048
     Dates: start: 20120503
  2. FUROSEMIDE (FUROSEMIDE) [Concomitant]
  3. NITROQUICK (GLYCERYL TRINITRATE) [Concomitant]
  4. PRAVASTATIN (PRAVASTATIN) [Concomitant]
  5. LEVEMIR (INSULIN DETEMIR) [Concomitant]
  6. RENVELA (SEVELAMER CARBONATE) [Concomitant]
  7. NOVOLOG (INSULIN ASPART) [Concomitant]
  8. ALLOPURINOL (ALLOPURINOL) [Concomitant]
  9. OMEPRAZOLE (OMEPRAZOLE) [Concomitant]
  10. MVI (MVI) [Concomitant]
  11. ASPIRIN (ACETYLSALICYLIC ACID) [Concomitant]
  12. ACETAMINOPHEN (PARACETAMOL) [Concomitant]
  13. DEXAMETHASONE (DEXAMETHASONE) [Concomitant]
  14. DIOVAN (VALSARTAN) [Concomitant]
  15. TOPROL XL (METOPROLOL SUCCINATE) [Concomitant]

REACTIONS (1)
  - Cerebrovascular accident [None]
